FAERS Safety Report 21338610 (Version 1)
Quarter: 2022Q3

REPORT INFORMATION
  Report Type: Spontaneous
  Country: ES (occurrence: ES)
  Receive Date: 20220915
  Receipt Date: 20220915
  Transmission Date: 20221026
  Serious: Yes (Hospitalization, Other)
  Sender: FDA-Public Use
  Company Number: ES-KEDRION-2022-000323

PATIENT
  Sex: Female

DRUGS (1)
  1. HUMAN IMMUNOGLOBULIN G [Suspect]
     Active Substance: HUMAN IMMUNOGLOBULIN G
     Indication: Coombs positive haemolytic anaemia
     Dosage: 1 G/KG, Q6HR
     Route: 042

REACTIONS (4)
  - Abdominal operation [Recovered/Resolved with Sequelae]
  - Endotracheal intubation [Recovered/Resolved with Sequelae]
  - Necrotising enterocolitis neonatal [Recovered/Resolved with Sequelae]
  - Off label use [Unknown]
